FAERS Safety Report 4365330-0 (Version None)
Quarter: 2004Q2

REPORT INFORMATION
  Report Type: 
  Country: None (occurrence: None)
  Receive Date: 20040521
  Receipt Date: 20040504
  Transmission Date: 20050107
  Serious: Yes (Hospitalization, Other)
  Sender: FDA-Public Use
  Company Number: USA040566651

PATIENT
  Age: 62 Year
  Sex: Female
  Weight: 135 kg

DRUGS (5)
  1. HUMULIN N [Suspect]
     Indication: DIABETES MELLITUS
     Dosage: 95 U DAY
     Dates: start: 19990101
  2. METFORMIN HCL [Concomitant]
  3. PIOGLITAZONE HCL [Concomitant]
  4. GLIPIZIDE [Concomitant]
  5. PLAVIX [Concomitant]

REACTIONS (5)
  - CORONARY ARTERY OCCLUSION [None]
  - DEVICE FAILURE [None]
  - INJECTION SITE HAEMORRHAGE [None]
  - MEDICATION ERROR [None]
  - PHARMACEUTICAL PRODUCT COMPLAINT [None]
